FAERS Safety Report 16704950 (Version 3)
Quarter: 2019Q3

REPORT INFORMATION
  Report Type: Report from Study
  Country: None (occurrence: US)
  Receive Date: 20190814
  Receipt Date: 20190823
  Transmission Date: 20191004
  Serious: Yes (Hospitalization, Other)
  Sender: FDA-Public Use
  Company Number: US-ABBVIE-19K-163-2882108-00

PATIENT
  Age: 68 Year
  Sex: Male
  Weight: 70.37 kg

DRUGS (1)
  1. VENCLEXTA [Suspect]
     Active Substance: VENETOCLAX
     Indication: CHRONIC LYMPHOCYTIC LEUKAEMIA
     Route: 048
     Dates: start: 201701, end: 20190627

REACTIONS (12)
  - Ageusia [Unknown]
  - Stomatitis [Unknown]
  - Heart rate irregular [Unknown]
  - Alopecia [Unknown]
  - Oral mucosal blistering [Not Recovered/Not Resolved]
  - Febrile neutropenia [Recovering/Resolving]
  - Asthenia [Unknown]
  - Feeling abnormal [Recovering/Resolving]
  - Pain [Unknown]
  - Chills [Not Recovered/Not Resolved]
  - Blood pressure abnormal [Unknown]
  - Lymphoma [Not Recovered/Not Resolved]

NARRATIVE: CASE EVENT DATE: 2019
